FAERS Safety Report 20031712 (Version 3)
Quarter: 2021Q4

REPORT INFORMATION
  Report Type: Report from Study
  Country: US (occurrence: US)
  Receive Date: 20211103
  Receipt Date: 20211104
  Transmission Date: 20220303
  Serious: Yes (Hospitalization, Other)
  Sender: FDA-Public Use
  Company Number: US-ABBVIE-21K-163-4138472-00

PATIENT
  Age: 66 Year
  Sex: Female
  Weight: 74.910 kg

DRUGS (9)
  1. RINVOQ [Suspect]
     Active Substance: UPADACITINIB
     Indication: Rheumatoid arthritis
     Route: 048
     Dates: start: 20201009, end: 202101
  2. ORENCIA [Concomitant]
     Active Substance: ABATACEPT
     Indication: Product used for unknown indication
     Dates: start: 20210127, end: 20210430
  3. GLIMEPIRIDE [Concomitant]
     Active Substance: GLIMEPIRIDE
     Indication: Product used for unknown indication
     Dates: start: 20200702
  4. LISINOPRIL [Concomitant]
     Active Substance: LISINOPRIL
     Indication: Product used for unknown indication
     Dates: start: 20200702
  5. METFORMIN [Concomitant]
     Active Substance: METFORMIN HYDROCHLORIDE
     Indication: Product used for unknown indication
     Dates: start: 20200702
  6. PROZAC [Concomitant]
     Active Substance: FLUOXETINE HYDROCHLORIDE
     Indication: Product used for unknown indication
     Dates: start: 20200702
  7. FLUOXETINE [Concomitant]
     Active Substance: FLUOXETINE HYDROCHLORIDE
     Indication: Product used for unknown indication
  8. MODERNA COVID-19 VACCINE [Concomitant]
     Active Substance: CX-024414
     Indication: COVID-19 immunisation
     Route: 030
     Dates: start: 20210212, end: 20210212
  9. MODERNA COVID-19 VACCINE [Concomitant]
     Active Substance: CX-024414
     Route: 030
     Dates: start: 20210312, end: 20210312

REACTIONS (6)
  - COVID-19 [Recovered/Resolved]
  - Influenza [Unknown]
  - Sepsis [Recovered/Resolved]
  - Pulmonary mass [Unknown]
  - Sinusitis [Unknown]
  - Pneumonia [Recovered/Resolved]

NARRATIVE: CASE EVENT DATE: 20210405
